FAERS Safety Report 10500715 (Version 4)
Quarter: 2015Q1

REPORT INFORMATION
  Report Type: Spontaneous
  Country: US (occurrence: US)
  Receive Date: 20141006
  Receipt Date: 20150108
  Transmission Date: 20150720
  Serious: Yes (Other)
  Sender: FDA-Public Use
  Company Number: US-AMGEN-USASP2014075643

PATIENT
  Age: 77 Year
  Sex: Female
  Weight: 93.42 kg

DRUGS (4)
  1. PROLIA [Suspect]
     Active Substance: DENOSUMAB
     Indication: OSTEOPOROSIS POSTMENOPAUSAL
     Dosage: ONCE
     Route: 030
     Dates: start: 201408
  2. ACTONEL [Suspect]
     Active Substance: RISEDRONATE SODIUM
     Indication: OSTEOPOROSIS
     Dosage: UNK
     Route: 048
     Dates: start: 200803, end: 201408
  3. METFORMIN [Concomitant]
     Active Substance: METFORMIN HYDROCHLORIDE
     Indication: TYPE 2 DIABETES MELLITUS
  4. PROLIA [Suspect]
     Active Substance: DENOSUMAB
     Indication: OSTEITIS DEFORMANS

REACTIONS (14)
  - Blood parathyroid hormone abnormal [Unknown]
  - Hypocalcaemia [Recovered/Resolved]
  - Paraesthesia [Unknown]
  - Oedema [Unknown]
  - Fatigue [Unknown]
  - Malaise [Unknown]
  - Balance disorder [Unknown]
  - Tetany [Recovered/Resolved]
  - Dizziness [Unknown]
  - Exercise tolerance decreased [Unknown]
  - Asthenia [Unknown]
  - Hypoaesthesia oral [Unknown]
  - Muscle spasms [Unknown]
  - Incorrect route of drug administration [Unknown]

NARRATIVE: CASE EVENT DATE: 20140930
